FAERS Safety Report 5743581-8 (Version None)
Quarter: 2008Q2

REPORT INFORMATION
  Report Type: 
  Country: None (occurrence: None)
  Receive Date: 20080519
  Receipt Date: 20080519
  Transmission Date: 20081010
  Serious: Yes (Life-Threatening)
  Sender: FDA-Public Use
  Company Number: None

PATIENT
  Age: 32 Year
  Sex: Female
  Weight: 77.1115 kg

DRUGS (2)
  1. AMBIEN CR [Suspect]
     Indication: INITIAL INSOMNIA
     Dosage: 12.5 MG 1 PER DAY
     Dates: start: 20070201, end: 20080517
  2. AMBIEN CR [Suspect]
     Indication: INSOMNIA
     Dosage: 12.5 MG 1 PER DAY
     Dates: start: 20070201, end: 20080517

REACTIONS (5)
  - IMPRISONMENT [None]
  - LEGAL PROBLEM [None]
  - POISONING [None]
  - ROAD TRAFFIC ACCIDENT [None]
  - SOMNAMBULISM [None]
